FAERS Safety Report 9253149 (Version 3)
Quarter: 2013Q2

REPORT INFORMATION
  Report Type: Report from Study
  Country: DE (occurrence: UY)
  Receive Date: 20130424
  Receipt Date: 20130501
  Transmission Date: 20140414
  Serious: Yes (Hospitalization, Other)
  Sender: FDA-Public Use
  Company Number: DE-ACTELION-A-US2013-82456

PATIENT
  Age: 35 Year
  Sex: Female

DRUGS (6)
  1. VENTAVIS [Suspect]
     Indication: PULMONARY ARTERIAL HYPERTENSION
     Dosage: 10 ?G, Q4HRS
     Route: 055
  2. VENTAVIS [Suspect]
     Dosage: UNK
     Route: 055
     Dates: start: 20130419
  3. DIGOXIN [Concomitant]
  4. FUROSEMIDE [Concomitant]
  5. SPIRONOLACTONE [Concomitant]
  6. SILDENAFIL [Concomitant]

REACTIONS (12)
  - Gastric ulcer [Unknown]
  - Abdominal distension [Recovered/Resolved]
  - Cardiac failure [Unknown]
  - Fluid retention [Unknown]
  - Hypotension [Unknown]
  - Dyspnoea [Recovered/Resolved]
  - Condition aggravated [Recovered/Resolved]
  - Oedema peripheral [Recovered/Resolved]
  - Nausea [Unknown]
  - Vomiting [Unknown]
  - Weight decreased [Unknown]
  - Hypochromic anaemia [Unknown]
